FAERS Safety Report 7152677 (Version 2)
Quarter: 2013Q2

REPORT INFORMATION
  Report Type: Report from Study
  Country: FR (occurrence: FR)
  Receive Date: 20091019
  Receipt Date: 20130612
  Transmission Date: 20140414
  Serious: Yes (Hospitalization)
  Sender: FDA-Public Use
  Company Number: PHHY2009FR43569

PATIENT
  Age: 65 Year
  Sex: Male

DRUGS (1)
  1. STI571 [Suspect]
     Indication: CHRONIC MYELOID LEUKAEMIA
     Dosage: UNK UKN, UNK

REACTIONS (5)
  - Inflammation [Recovered/Resolved]
  - Arthralgia [Recovered/Resolved]
  - Muscle disorder [Recovered/Resolved]
  - Prostatic calcification [Recovered/Resolved]
  - Nodule [Recovered/Resolved]
